FAERS Safety Report 5902659-6 (Version None)
Quarter: 2008Q3

REPORT INFORMATION
  Report Type: 
  Country: None (occurrence: None)
  Receive Date: 20080930
  Receipt Date: 20080918
  Transmission Date: 20090109
  Serious: Yes (Life-Threatening, Hospitalization, Other)
  Sender: FDA-Public Use
  Company Number: GB-RANBAXY-2008RR-15720

PATIENT
  Age: 18 Year
  Sex: Male

DRUGS (1)
  1. IBUPROFEN TABLETS [Suspect]
     Dosage: 200 MG, PRN
     Route: 048

REACTIONS (10)
  - CHEST PAIN [None]
  - DYSPHAGIA [None]
  - DYSPNOEA [None]
  - LEUKOCYTOSIS [None]
  - MALAISE [None]
  - NECK PAIN [None]
  - ODYNOPHAGIA [None]
  - OESOPHAGEAL PERFORATION [None]
  - OROPHARYNGEAL PAIN [None]
  - SUBCUTANEOUS EMPHYSEMA [None]
